FAERS Safety Report 7844754 (Version 2)
Quarter: 2012Q4

REPORT INFORMATION
  Report Type: 
  Country: DE (occurrence: DE)
  Receive Date: 20110307
  Receipt Date: 20121213
  Transmission Date: 20130627
  Serious: Yes (Life-Threatening, Hospitalization, Other)
  Sender: FDA-Public Use
  Company Number: DE-BAYER-2011-017439

PATIENT
  Age: 64 Year
  Sex: Female
  Weight: 64 kg

DRUGS (3)
  1. PARACETAMOL [Concomitant]
     Indication: COMMUNITY ACQUIRED PNEUMONIA
     Dosage: UNK
     Route: 048
     Dates: start: 20101110, end: 20101120
  2. DIPHENHYDRAMINE [Suspect]
     Indication: INSOMNIA EXACERBATED
     Dosage: UNK
  3. AVALOX [Suspect]
     Indication: COMMUNITY ACQUIRED PNEUMONIA
     Dosage: UNK
     Dates: start: 20101110, end: 20101120

REACTIONS (5)
  - Coma [Not Recovered/Not Resolved]
  - Multi-organ failure [None]
  - Circulatory collapse [None]
  - Cardiac arrest [None]
  - Angioedema [None]
